FAERS Safety Report 8618771-7 (Version None)
Quarter: 2012Q3

REPORT INFORMATION
  Report Type: 
  Country: None (occurrence: None)
  Receive Date: 20120816
  Receipt Date: 20120816
  Transmission Date: 20120928
  Serious: No
  Sender: FDA-Public Use
  Company Number: None

PATIENT
  Age: 55 Year
  Sex: Female
  Weight: 71.4 kg

DRUGS (1)
  1. ATORVASTATIN [Suspect]
     Indication: HYPERCHOLESTEROLAEMIA
     Dosage: 10MG   DAILY ORAL , (ONLY TOOK ONE)
     Route: 048
     Dates: start: 20120814

REACTIONS (4)
  - OCULAR HYPERAEMIA [None]
  - PRODUCT SUBSTITUTION ISSUE [None]
  - EYE SWELLING [None]
  - EYE PRURITUS [None]
